FAERS Safety Report 17660166 (Version 2)
Quarter: 2020Q2

REPORT INFORMATION
  Report Type: Spontaneous
  Country: US (occurrence: US)
  Receive Date: 20200413
  Receipt Date: 20200501
  Transmission Date: 20200713
  Serious: No
  Sender: FDA-Public Use
  Company Number: US-GLAXOSMITHKLINE-US2020062436

PATIENT
  Sex: Female

DRUGS (1)
  1. ANORO ELLIPTA [Suspect]
     Active Substance: UMECLIDINIUM BROMIDE\VILANTEROL TRIFENATATE
     Indication: EMPHYSEMA
     Dosage: 1 PUFF(S), QD

REACTIONS (6)
  - Product complaint [Unknown]
  - Dyspnoea [Unknown]
  - Product dose omission [Unknown]
  - Lung disorder [Not Recovered/Not Resolved]
  - Dry mouth [Unknown]
  - Wrong technique in device usage process [Unknown]
